FAERS Safety Report 25042634 (Version 1)
Quarter: 2025Q1

REPORT INFORMATION
  Report Type: Spontaneous
  Country: FI (occurrence: FI)
  Receive Date: 20250305
  Receipt Date: 20250305
  Transmission Date: 20250408
  Serious: Yes (Disabling)
  Sender: TEVA
  Company Number: None

PATIENT
  Age: 22 Year
  Sex: Female

DRUGS (2)
  1. ESCITALOPRAM [Suspect]
     Active Substance: ESCITALOPRAM OXALATE
     Indication: Product used for unknown indication
     Route: 065
  2. ESCITALOPRAM OXALATE [Suspect]
     Active Substance: ESCITALOPRAM OXALATE
     Indication: Social fear
     Route: 065
     Dates: start: 2015

REACTIONS (10)
  - Personality change [Unknown]
  - Depression [Unknown]
  - Drug withdrawal syndrome [Unknown]
  - Indifference [Unknown]
  - Sexual dysfunction [Unknown]
  - Depersonalisation/derealisation disorder [Unknown]
  - Emotional poverty [Unknown]
  - Mania [Unknown]
  - Anxiety [Unknown]
  - Social problem [Unknown]

NARRATIVE: CASE EVENT DATE: 20150101
